FAERS Safety Report 4896050-1 (Version None)
Quarter: 2005Q4

REPORT INFORMATION
  Report Type: 
  Country: None (occurrence: None)
  Receive Date: 20051220
  Receipt Date: 20050520
  Transmission Date: 20060501
  Serious: Yes (Other)
  Sender: FDA-Public Use
  Company Number: US135374

PATIENT
  Age: 52 Year
  Sex: Female
  Weight: 50.4 kg

DRUGS (9)
  1. ENBREL [Suspect]
     Indication: RHEUMATOID ARTHRITIS
     Dosage: 25 MG, 1 IN 1 WEEKS, SC
     Route: 058
     Dates: start: 20010918, end: 20050224
  2. DICLOFENAC SODIUM [Concomitant]
  3. LEVOTHYROXINE SODIUM [Concomitant]
  4. CELECOXIB [Concomitant]
  5. CALCIUM GLUCONATE [Concomitant]
  6. HYDROXYCHLOROQUINE SULFATE [Concomitant]
  7. ALENDRONATE SODIUM [Concomitant]
  8. VICODIN [Concomitant]
  9. IRON SULFATETHIAMIN COMPOUND TAB [Concomitant]

REACTIONS (1)
  - DEMYELINATION [None]
